FAERS Safety Report 12732184 (Version 1)
Quarter: 2016Q3

REPORT INFORMATION
  Report Type: Spontaneous
  Country: GB (occurrence: GB)
  Receive Date: 20160912
  Receipt Date: 20160912
  Transmission Date: 20161109
  Serious: Yes (Disabling, Other)
  Sender: FDA-Public Use
  Company Number: GB-DRREDDYS-GER/UKI/16/0083020

PATIENT
  Age: 45 Year
  Sex: Female

DRUGS (1)
  1. SUMATRIPTAN FILM-COATED TABLETS, DR. REDDY^S [Suspect]
     Active Substance: SUMATRIPTAN
     Indication: MIGRAINE
     Dates: start: 20160805

REACTIONS (3)
  - Drug ineffective [Not Recovered/Not Resolved]
  - Dyspepsia [Not Recovered/Not Resolved]
  - Vomiting [Not Recovered/Not Resolved]

NARRATIVE: CASE EVENT DATE: 20160805
